FAERS Safety Report 10561169 (Version 1)
Quarter: 2014Q4

REPORT INFORMATION
  Report Type: Report from Study
  Country: GR (occurrence: GR)
  Receive Date: 20141103
  Receipt Date: 20141103
  Transmission Date: 20150529
  Serious: Yes (Hospitalization)
  Sender: FDA-Public Use
  Company Number: GR-GLAXOSMITHKLINE-GR2014GSK010006

PATIENT
  Age: 60 Year
  Sex: Female
  Weight: 35 kg

DRUGS (1)
  1. PAZOPANIB [Suspect]
     Active Substance: PAZOPANIB
     Indication: SMALL CELL LUNG CANCER METASTATIC
     Dosage: 800 MG, UNK
     Dates: start: 20131125, end: 20140831

REACTIONS (1)
  - Extrapyramidal disorder [Recovered/Resolved with Sequelae]

NARRATIVE: CASE EVENT DATE: 20140820
